FAERS Safety Report 9767267 (Version 1)
Quarter: 2013Q4

REPORT INFORMATION
  Report Type: Spontaneous
  Country: US (occurrence: US)
  Receive Date: 20131217
  Receipt Date: 20131217
  Transmission Date: 20140711
  Serious: No
  Sender: FDA-Public Use
  Company Number: US-GLAXOSMITHKLINE-A1046123A

PATIENT
  Age: 68 Year
  Sex: Female

DRUGS (2)
  1. VOTRIENT [Suspect]
     Indication: OVARIAN CANCER STAGE IV
     Dosage: 2TAB PER DAY
     Route: 048
     Dates: start: 20130906, end: 20131008
  2. VITAMINS [Concomitant]

REACTIONS (4)
  - Diarrhoea [Recovering/Resolving]
  - Fatigue [Recovering/Resolving]
  - Appetite disorder [Recovering/Resolving]
  - Diplopia [Not Recovered/Not Resolved]
